FAERS Safety Report 19119746 (Version 1)
Quarter: 2021Q2

REPORT INFORMATION
  Report Type: Spontaneous
  Country: FR (occurrence: FR)
  Receive Date: 20210412
  Receipt Date: 20210412
  Transmission Date: 20210717
  Serious: Yes (Life-Threatening)
  Sender: FDA-Public Use
  Company Number: FR-JNJFOC-20210418887

PATIENT
  Age: 31 Year
  Sex: Male

DRUGS (7)
  1. TRAMADOL HYDROCHLORIDE. [Suspect]
     Active Substance: TRAMADOL HYDROCHLORIDE
     Indication: PRODUCT USED FOR UNKNOWN INDICATION
     Dosage: 100 MILLIGRAM, ONCE
     Route: 042
     Dates: start: 20200616, end: 20200616
  2. NICARDIPINE HYDROCHLORIDE. [Suspect]
     Active Substance: NICARDIPINE HYDROCHLORIDE
     Indication: PRODUCT USED FOR UNKNOWN INDICATION
     Dosage: 1 MILLIGRAM, ONCE
     Route: 042
     Dates: start: 20200616, end: 20200616
  3. SUFENTANIL [SUFENTANIL CITRATE] [Suspect]
     Active Substance: SUFENTANIL CITRATE
     Indication: GENERAL ANAESTHESIA
     Route: 042
     Dates: start: 20200616, end: 20200616
  4. KETOPROFENE [KETOPROFEN] [Suspect]
     Active Substance: KETOPROFEN
     Indication: PRODUCT USED FOR UNKNOWN INDICATION
     Route: 042
     Dates: start: 20200616, end: 20200616
  5. DEXAMETHASON [DEXAMETHASONE SODIUM PHOSPHATE] [Suspect]
     Active Substance: DEXAMETHASONE SODIUM PHOSPHATE
     Indication: GENERAL ANAESTHESIA
     Dosage: 8 MILLIGRAM, ONCE
     Route: 042
     Dates: start: 20200616, end: 20200616
  6. ATROPINE AGUETTANT [Suspect]
     Active Substance: ATROPINE
     Indication: PRODUCT USED FOR UNKNOWN INDICATION
     Dosage: 0.5 MILLIGRAM, ONCE
     Route: 042
     Dates: start: 20200616, end: 20200616
  7. PROPOFOL LIPURO [Suspect]
     Active Substance: PROPOFOL
     Indication: GENERAL ANAESTHESIA
     Dosage: 300 MILLIGRAM, ONCE
     Route: 042
     Dates: start: 20200616, end: 20200616

REACTIONS (1)
  - Hypersensitivity [Recovered/Resolved]

NARRATIVE: CASE EVENT DATE: 20200616
